FAERS Safety Report 6829894-7 (Version None)
Quarter: 2010Q3

REPORT INFORMATION
  Report Type: 
  Country: None (occurrence: None)
  Receive Date: 20100711
  Receipt Date: 20100325
  Transmission Date: 20110219
  Serious: No
  Sender: FDA-Public Use
  Company Number: US-ALLERGAN-1003930US

PATIENT
  Sex: Female

DRUGS (2)
  1. LATISSE [Suspect]
     Indication: GROWTH OF EYELASHES
     Dosage: 1 GTT, QHS
     Route: 061
  2. VITAMIN D [Concomitant]

REACTIONS (3)
  - EYELID PTOSIS [None]
  - MUSCLE TWITCHING [None]
  - OCULAR HYPERAEMIA [None]
